FAERS Safety Report 17688329 (Version 2)
Quarter: 2020Q2

REPORT INFORMATION
  Report Type: Report from Study
  Country: US (occurrence: US)
  Receive Date: 20200421
  Receipt Date: 20200504
  Transmission Date: 20200714
  Serious: Yes (Hospitalization)
  Sender: FDA-Public Use
  Company Number: US-EISAI MEDICAL RESEARCH-EC-2020-073056

PATIENT
  Age: 51 Year
  Sex: Female
  Weight: 68.4 kg

DRUGS (1)
  1. LENVIMA [Suspect]
     Active Substance: LENVATINIB
     Indication: UTERINE CANCER
     Dosage: ALSO REPORTED AS 10 MG
     Route: 048
     Dates: start: 20200324, end: 20200326

REACTIONS (3)
  - Pulmonary oedema [Recovered/Resolved]
  - Hepatic enzyme increased [Recovering/Resolving]
  - Ascites [Recovered/Resolved]

NARRATIVE: CASE EVENT DATE: 20200330
